FAERS Safety Report 21906436 (Version 1)
Quarter: 2023Q1

REPORT INFORMATION
  Report Type: Spontaneous
  Country: AU (occurrence: AU)
  Receive Date: 20230125
  Receipt Date: 20230125
  Transmission Date: 20230417
  Serious: Yes (Other)
  Sender: FDA-Public Use
  Company Number: AU-SA-SAC20220707000097

PATIENT
  Age: 65 Year
  Sex: Male

DRUGS (2)
  1. CLOPIDOGREL BISULFATE [Suspect]
     Active Substance: CLOPIDOGREL BISULFATE
     Dosage: UNK
  2. TOZINAMERAN [Suspect]
     Active Substance: TOZINAMERAN
     Dosage: UNK

REACTIONS (14)
  - Embolic stroke [Unknown]
  - Fatigue [Unknown]
  - Anxiety [Unknown]
  - Atrial flutter [Unknown]
  - Back pain [Unknown]
  - Bone pain [Unknown]
  - Condition aggravated [Unknown]
  - Malaise [Unknown]
  - Pallor [Unknown]
  - Skin discolouration [Unknown]
  - Speech disorder [Unknown]
  - Hypoaesthesia [Unknown]
  - Contusion [Unknown]
  - Confusional state [Unknown]

NARRATIVE: CASE EVENT DATE: 20211204
